FAERS Safety Report 7887933-9 (Version None)
Quarter: 2011Q4

REPORT INFORMATION
  Report Type: 
  Country: None (occurrence: None)
  Receive Date: 20111103
  Receipt Date: 20111026
  Transmission Date: 20120403
  Serious: Yes (Death, Hospitalization)
  Sender: FDA-Public Use
  Company Number: US-ACTELION-A-US2011-55918

PATIENT

DRUGS (16)
  1. DIGOXEN [Concomitant]
  2. PROTONIX [Concomitant]
  3. SERTRALINE HYDROCHLORIDE [Concomitant]
  4. LASIX [Concomitant]
  5. COUMADIN [Concomitant]
  6. LOPRESSOR [Concomitant]
  7. POTASSIUM [Concomitant]
  8. REVATIO [Concomitant]
  9. ZALEPLON [Concomitant]
  10. PIROXICAM [Concomitant]
  11. FLONASE [Concomitant]
  12. TRACLEER [Suspect]
     Indication: PULMONARY ARTERIAL HYPERTENSION
     Dosage: UNK
     Route: 048
     Dates: start: 20061204
  13. METOLAZONE [Concomitant]
  14. METFORMIN HCL [Concomitant]
  15. LIPITOR [Concomitant]
  16. SYNTHROID [Concomitant]

REACTIONS (6)
  - DEATH [None]
  - BLOOD CULTURE POSITIVE [None]
  - DYSPNOEA [None]
  - STAPHYLOCOCCUS TEST POSITIVE [None]
  - RENAL FAILURE ACUTE [None]
  - INTERSTITIAL LUNG DISEASE [None]
